FAERS Safety Report 13739039 (Version 2)
Quarter: 2018Q2

REPORT INFORMATION
  Report Type: Spontaneous
  Country: US (occurrence: US)
  Receive Date: 20170710
  Receipt Date: 20180627
  Transmission Date: 20180711
  Serious: No
  Sender: FDA-Public Use
  Company Number: US-SAOL THERAPEUTICS-2017SAO00850

PATIENT
  Sex: Male

DRUGS (3)
  1. HYDROMORPHONE [Suspect]
     Active Substance: HYDROMORPHONE
     Route: 037
  2. BACLOFEN. [Suspect]
     Active Substance: BACLOFEN
     Dosage: UNK
     Route: 037
  3. BACLOFEN. [Suspect]
     Active Substance: BACLOFEN
     Indication: MUSCLE SPASTICITY
     Dosage: UNK ?G, \DAY
     Route: 037

REACTIONS (7)
  - Malaise [Unknown]
  - Vomiting [Unknown]
  - Gait inability [Unknown]
  - Asthenia [Unknown]
  - Medical device site granuloma [Unknown]
  - Complication associated with device [Unknown]
  - Overdose [Unknown]

NARRATIVE: CASE EVENT DATE: 2017
